FAERS Safety Report 8607687-8 (Version None)
Quarter: 2012Q3

REPORT INFORMATION
  Report Type: 
  Country: None (occurrence: None)
  Receive Date: 20120821
  Receipt Date: 20120816
  Transmission Date: 20120928
  Serious: Yes (Other)
  Sender: FDA-Public Use
  Company Number: US-PFIZER INC-2012201253

PATIENT
  Sex: Female

DRUGS (1)
  1. CELEBREX [Suspect]
     Indication: ARTHRITIS
     Dosage: UNK

REACTIONS (6)
  - GLAUCOMA [None]
  - MYOCARDIAL INFARCTION [None]
  - HEARING IMPAIRED [None]
  - ARTHRITIS [None]
  - SKIN DISCOLOURATION [None]
  - DRUG INEFFECTIVE [None]
